FAERS Safety Report 5889071-3 (Version None)
Quarter: 2008Q3

REPORT INFORMATION
  Report Type: 
  Country: None (occurrence: None)
  Receive Date: 20080919
  Receipt Date: 20080102
  Transmission Date: 20090109
  Serious: No
  Sender: FDA-Public Use
  Company Number: US-KINGPHARMUSA00001-K200800006

PATIENT

DRUGS (3)
  1. SONATA [Suspect]
  2. CORTEF                             /00028601/ [Concomitant]
  3. FLORINEF [Concomitant]

REACTIONS (1)
  - MIDDLE INSOMNIA [None]
